FAERS Safety Report 17454146 (Version 1)
Quarter: 2020Q1

REPORT INFORMATION
  Report Type: Spontaneous
  Country: US (occurrence: US)
  Receive Date: 20200224
  Receipt Date: 20200224
  Transmission Date: 20200409
  Serious: Yes (Death)
  Sender: FDA-Public Use
  Company Number: None

PATIENT
  Age: 83 Year
  Sex: Male
  Weight: 94.89 kg

DRUGS (13)
  1. ATORVASTATIN 80MG [Concomitant]
     Active Substance: ATORVASTATIN
  2. GLIPIZDE 5MG [Concomitant]
  3. MAGNESIUM 300MG [Concomitant]
  4. METOPROLOL  SUCCINATE 100MG [Concomitant]
  5. LISINOPRIL. [Concomitant]
     Active Substance: LISINOPRIL
  6. TACROLIMUS 1MG [Concomitant]
     Active Substance: TACROLIMUS
  7. LIBTAYO [Suspect]
     Active Substance: CEMIPLIMAB-RWLC
     Indication: SKIN CANCER
     Dosage: ?          OTHER FREQUENCY:OVER 30MIN Q3WEEKS;?
     Route: 042
     Dates: start: 20191001, end: 20200120
  8. ALLOPURINOL 100MG [Concomitant]
     Active Substance: ALLOPURINOL
  9. AMLDOIPINE 5MG [Concomitant]
  10. CELLCEPT [Concomitant]
     Active Substance: MYCOPHENOLATE MOFETIL\MYCOPHENOLATE MOFETIL HYDROCHLORIDE
  11. VITAMIN D3 2,000 U [Concomitant]
  12. ASPIRIN 81MG [Concomitant]
     Active Substance: ASPIRIN
  13. FUROSEMIDE 20MG [Concomitant]
     Active Substance: FUROSEMIDE

REACTIONS (1)
  - Death [None]
